FAERS Safety Report 5514718-0 (Version None)
Quarter: 2007Q4

REPORT INFORMATION
  Report Type: 
  Country: None (occurrence: None)
  Receive Date: 20071113
  Receipt Date: 20071101
  Transmission Date: 20080405
  Serious: Yes (Other)
  Sender: FDA-Public Use
  Company Number: US-PFIZER INC-2007092717

PATIENT
  Sex: Female

DRUGS (4)
  1. DILANTIN [Suspect]
     Indication: EPILEPSY
     Dosage: DAILY DOSE:50MG
     Route: 048
  2. DILANTIN [Suspect]
     Dosage: TEXT:100 - 150 MG DAILY
     Route: 048
  3. TEGRETOL [Suspect]
     Indication: CONVULSION
     Dosage: DAILY DOSE:800MG
     Dates: start: 19981201, end: 20000101
  4. KEPPRA [Suspect]
     Indication: CONVULSION

REACTIONS (15)
  - ACTIVITIES OF DAILY LIVING IMPAIRED [None]
  - BRAIN DAMAGE [None]
  - BRAIN OPERATION [None]
  - CONVULSION [None]
  - DYSPHONIA [None]
  - GAIT DISTURBANCE [None]
  - GINGIVAL HYPERPLASIA [None]
  - HEAD INJURY [None]
  - MOOD SWINGS [None]
  - MOTOR DYSFUNCTION [None]
  - PERONEAL NERVE PALSY [None]
  - SENILE DEMENTIA [None]
  - SUICIDAL IDEATION [None]
  - TREMOR [None]
  - WEIGHT INCREASED [None]
